FAERS Safety Report 6641580-5 (Version None)
Quarter: 2010Q1

REPORT INFORMATION
  Report Type: 
  Country: None (occurrence: None)
  Receive Date: 20100318
  Receipt Date: 20100308
  Transmission Date: 20100710
  Serious: Yes (Hospitalization)
  Sender: FDA-Public Use
  Company Number: US-ABBOTT-10P-163-0630866-00

PATIENT
  Sex: Male
  Weight: 128.03 kg

DRUGS (7)
  1. HUMIRA [Suspect]
     Indication: PSORIASIS
     Route: 058
     Dates: start: 20080101, end: 20100101
  2. HUMIRA [Suspect]
     Indication: PSORIATIC ARTHROPATHY
  3. HUMIRA [Suspect]
     Indication: RHEUMATOID ARTHRITIS
  4. NOVOLOG [Concomitant]
     Indication: DIABETES MELLITUS
     Dosage: SLIDING SCALE
     Route: 058
  5. LANTUS [Concomitant]
     Indication: DIABETES MELLITUS
     Dosage: QHS
     Route: 058
  6. WELLBUTRIN [Concomitant]
     Indication: DEPRESSION
     Route: 048
  7. LORAZEPAM [Concomitant]
     Indication: PANIC ATTACK
     Dosage: PRN
     Route: 048

REACTIONS (3)
  - DEPRESSION [None]
  - PSORIASIS [None]
  - RASH MACULAR [None]
